FAERS Safety Report 9773935 (Version 2)
Quarter: 2014Q1

REPORT INFORMATION
  Report Type: Report from Study
  Country: PE (occurrence: PE)
  Receive Date: 20131220
  Receipt Date: 20140127
  Transmission Date: 20141002
  Serious: Yes (Other)
  Sender: FDA-Public Use
  Company Number: PE-ROCHE-1316030

PATIENT
  Sex: Female

DRUGS (2)
  1. HERCEPTIN [Suspect]
     Indication: BREAST CANCER
     Route: 042
     Dates: start: 20090317, end: 20130925
  2. CARBOPLATIN [Concomitant]
     Indication: BREAST CANCER
     Route: 042

REACTIONS (6)
  - Jaundice [Recovering/Resolving]
  - Paraparesis [Not Recovered/Not Resolved]
  - Terminal state [Not Recovered/Not Resolved]
  - Asthenia [Not Recovered/Not Resolved]
  - Decreased appetite [Not Recovered/Not Resolved]
  - Diarrhoea [Not Recovered/Not Resolved]
